FAERS Safety Report 11350520 (Version 1)
Quarter: 2015Q3

REPORT INFORMATION
  Report Type: Report from Study
  Country: RU (occurrence: RU)
  Receive Date: 20150807
  Receipt Date: 20150807
  Transmission Date: 20151125
  Serious: Yes (Hospitalization, Other)
  Sender: FDA-Public Use
  Company Number: RU-BAYER-2015-366024

PATIENT
  Age: 22 Year
  Sex: Female
  Weight: 64 kg

DRUGS (1)
  1. YAZ PLUS [Suspect]
     Active Substance: DROSPIRENONE\ETHINYL ESTRADIOL
     Dosage: UNK
     Dates: start: 20150105, end: 20150327

REACTIONS (3)
  - Pregnancy on oral contraceptive [None]
  - Drug dose omission [None]
  - Abortion missed [None]

NARRATIVE: CASE EVENT DATE: 20150428
